FAERS Safety Report 4387840-2 (Version None)
Quarter: 2004Q2

REPORT INFORMATION
  Report Type: 
  Country: None (occurrence: None)
  Receive Date: 20040623
  Receipt Date: 20040609
  Transmission Date: 20050107
  Serious: Yes (Other)
  Sender: FDA-Public Use
  Company Number: USA040669701

PATIENT
  Sex: Female

DRUGS (2)
  1. KEFZOL [Suspect]
     Indication: PROPHYLAXIS
  2. KEFZOL [Suspect]
     Indication: SURGERY

REACTIONS (2)
  - ANAESTHETIC COMPLICATION [None]
  - DEAFNESS UNILATERAL [None]
